FAERS Safety Report 11445600 (Version 1)
Quarter: 2015Q3

REPORT INFORMATION
  Report Type: Spontaneous
  Country: US (occurrence: None)
  Receive Date: 20150901
  Receipt Date: 20150901
  Transmission Date: 20151125
  Serious: Yes (Other)
  Sender: FDA-Public Use
  Company Number: None

PATIENT
  Age: 42 Year
  Sex: Male
  Weight: 108.86 kg

DRUGS (6)
  1. METFORMIN [Concomitant]
     Active Substance: METFORMIN HYDROCHLORIDE
  2. BYDUREON [Suspect]
     Active Substance: EXENATIDE
     Indication: WEIGHT CONTROL
     Dosage: VIAL, AT BEDTIME, GIVEN INTO/UNDER THE SKIN
     Dates: start: 20150713, end: 20150831
  3. ONGLYZA [Concomitant]
     Active Substance: SAXAGLIPTIN HYDROCHLORIDE
  4. BYDUREON [Suspect]
     Active Substance: EXENATIDE
     Indication: DIABETES MELLITUS
     Dosage: VIAL, AT BEDTIME, GIVEN INTO/UNDER THE SKIN
     Dates: start: 20150713, end: 20150831
  5. VALSARTAN. [Concomitant]
     Active Substance: VALSARTAN
  6. NIFEDIPINE. [Concomitant]
     Active Substance: NIFEDIPINE

REACTIONS (1)
  - Injection site nodule [None]

NARRATIVE: CASE EVENT DATE: 20150831
